FAERS Safety Report 8974123 (Version 1)
Quarter: 2012Q4

REPORT INFORMATION
  Report Type: Spontaneous
  Country: US (occurrence: None)
  Receive Date: 20121217
  Receipt Date: 20121217
  Transmission Date: 20130627
  Serious: No
  Sender: FDA-Public Use
  Company Number: None

PATIENT
  Age: 43 Year
  Sex: Male
  Weight: 89.3 kg

DRUGS (4)
  1. VEMURAFENIB [Suspect]
     Dosage: four tablets by mouth twice a day (oral chemotherapy - use handling precautions)
     Route: 048
     Dates: start: 20120912, end: 20120922
  2. PREDNISONE [Suspect]
     Dosage: 4 tablets
     Route: 048
  3. HYDROCORTISONE [Suspect]
  4. TRIAMCINOLONE [Suspect]

REACTIONS (1)
  - Rash [None]
